FAERS Safety Report 11738214 (Version 4)
Quarter: 2021Q3

REPORT INFORMATION
  Report Type: Spontaneous
  Country: US (occurrence: US)
  Receive Date: 20151113
  Receipt Date: 20210715
  Transmission Date: 20211014
  Serious: Yes (Other)
  Sender: FDA-Public Use
  Company Number: US-PFIZER INC-2015386344

PATIENT
  Age: 75 Year
  Sex: Female
  Weight: 54 kg

DRUGS (5)
  1. PREMARIN [Suspect]
     Active Substance: ESTROGENS, CONJUGATED
     Indication: HORMONE REPLACEMENT THERAPY
     Dosage: 1.25 MG, DAILY
     Dates: start: 1979
  2. CLIDINIUM [Concomitant]
     Active Substance: CLIDINIUM
     Indication: STRESS
  3. PREMARIN [Suspect]
     Active Substance: ESTROGENS, CONJUGATED
     Dosage: 1.25 MG, DAILY
  4. CLIDINIUM [Concomitant]
     Active Substance: CLIDINIUM
     Indication: GASTRIC DISORDER
     Dosage: 2.5 MG, 1X/DAY CAPSULE AT BED TIME
     Dates: start: 1997
  5. CLIDINIUM [Concomitant]
     Active Substance: CLIDINIUM
     Indication: IRRITABLE BOWEL SYNDROME

REACTIONS (4)
  - Conjunctival hyperaemia [Recovered/Resolved]
  - Macular hole [Recovered/Resolved]
  - Feeling abnormal [Unknown]
  - Visual field defect [Recovered/Resolved]

NARRATIVE: CASE EVENT DATE: 20150812
